FAERS Safety Report 19100451 (Version 1)
Quarter: 2021Q2

REPORT INFORMATION
  Report Type: Spontaneous
  Country: US (occurrence: US)
  Receive Date: 20210407
  Receipt Date: 20210407
  Transmission Date: 20210717
  Serious: No
  Sender: FDA-Public Use
  Company Number: US-PTC THERAPEUTICS, INC.-US-2020PTC000158

PATIENT
  Sex: Male
  Weight: 27.98 kg

DRUGS (1)
  1. EMFLAZA [Suspect]
     Active Substance: DEFLAZACORT
     Indication: MUSCULAR DYSTROPHY
     Dosage: 25 MG, QD
     Route: 048

REACTIONS (3)
  - Headache [Unknown]
  - Rash macular [Unknown]
  - Product dose omission issue [Unknown]
